FAERS Safety Report 5515629-7 (Version None)
Quarter: 2007Q4

REPORT INFORMATION
  Report Type: 
  Country: None (occurrence: None)
  Receive Date: 20071113
  Receipt Date: 20070709
  Transmission Date: 20080405
  Serious: No
  Sender: FDA-Public Use
  Company Number: A0663847A

PATIENT
  Sex: Male

DRUGS (1)
  1. COREG [Suspect]
     Dosage: 3.25MG TWICE PER DAY
     Route: 048

REACTIONS (5)
  - FATIGUE [None]
  - FEELING ABNORMAL [None]
  - LIBIDO DECREASED [None]
  - SLUGGISHNESS [None]
  - SOMNOLENCE [None]
